FAERS Safety Report 10901018 (Version 6)
Quarter: 2016Q1

REPORT INFORMATION
  Report Type: Spontaneous
  Country: US (occurrence: US)
  Receive Date: 20150310
  Receipt Date: 20160218
  Transmission Date: 20160525
  Serious: Yes (Hospitalization, Other)
  Sender: FDA-Public Use
  Company Number: US-PFIZER INC-2015081587

PATIENT
  Age: 65 Year
  Sex: Female
  Weight: 59 kg

DRUGS (6)
  1. REVATIO [Suspect]
     Active Substance: SILDENAFIL CITRATE
     Indication: PULMONARY ARTERIAL HYPERTENSION
     Dosage: 160 MG (8 X 20 MG), DAILY
     Route: 048
  2. REVATIO [Suspect]
     Active Substance: SILDENAFIL CITRATE
     Indication: PAIN IN EXTREMITY
     Dosage: 240 MG (12 X 20 MG), DAILY
     Route: 048
  3. REVATIO [Suspect]
     Active Substance: SILDENAFIL CITRATE
     Dosage: THREE 20 MG TABLETS IN THE MORNING AND FOUR 20 MG TABLETS MIDDAY
     Route: 048
  4. REVATIO [Suspect]
     Active Substance: SILDENAFIL CITRATE
     Indication: SCLERODERMA
     Dosage: 200 MG (10 X20 MG TABLETS), DAILY
     Route: 048
     Dates: start: 2011
  5. REVATIO [Suspect]
     Active Substance: SILDENAFIL CITRATE
     Dosage: 3 DF, 3X/DAY
     Route: 048
  6. REVATIO [Suspect]
     Active Substance: SILDENAFIL CITRATE
     Dosage: 200 MG, DAILY (20 MG 10 PILLS A DAY)
     Route: 048
     Dates: start: 2014

REACTIONS (6)
  - Cholecystitis [Recovered/Resolved]
  - Product use issue [Not Recovered/Not Resolved]
  - Cataract [Recovered/Resolved]
  - Cholelithiasis [Recovered/Resolved]
  - Stress [Not Recovered/Not Resolved]
  - Chest pain [Recovered/Resolved]

NARRATIVE: CASE EVENT DATE: 2011
